FAERS Safety Report 4364367-5 (Version None)
Quarter: 2004Q2

REPORT INFORMATION
  Report Type: 
  Country: None (occurrence: None)
  Receive Date: 20040519
  Receipt Date: 20040504
  Transmission Date: 20050107
  Serious: Yes (Death, Hospitalization)
  Sender: FDA-Public Use
  Company Number: 2004-DE-02564GD

PATIENT
  Age: 66 Year
  Sex: Male

DRUGS (15)
  1. AZATHIOPRINE [Suspect]
     Indication: RENAL TRANSPLANT
  2. PREDNISONE [Suspect]
     Indication: RENAL TRANSPLANT
  3. PROTAMINE HAGEDORN  PREPARATION OF INSULINE [Concomitant]
  4. INSULIN LISPRO (INSULIN LISPRO) [Concomitant]
  5. PANTOPRAZOLE (PANTOPRAZOLE) [Concomitant]
  6. VITAMIN B12 (CYANOCOBLAMIN) [Concomitant]
  7. FOLIC ACID [Concomitant]
  8. VITAMIN B6 [Concomitant]
  9. VITAMIN C (ASCORBIC ACID) [Concomitant]
  10. MULTIVITAMIN [Concomitant]
  11. GABAPENTIN [Concomitant]
  12. QUETIAPINE (QUETIAPINE) [Concomitant]
  13. SPIRONOLACTONE [Concomitant]
  14. LACTULOSE [Concomitant]
  15. LORAZEPAM [Concomitant]

REACTIONS (23)
  - ABDOMINAL DISTENSION [None]
  - BLOOD GLUCOSE DECREASED [None]
  - BLOOD PRESSURE SYSTOLIC DECREASED [None]
  - BRAIN STEM SYNDROME [None]
  - CACHEXIA [None]
  - CARDIAC MURMUR [None]
  - CAROTID ARTERY DISEASE [None]
  - COGWHEEL RIGIDITY [None]
  - DISORIENTATION [None]
  - DISTURBANCE IN ATTENTION [None]
  - DYSARTHRIA [None]
  - ECCHYMOSIS [None]
  - FACIAL PALSY [None]
  - GAIT DISTURBANCE [None]
  - HEMIPARESIS [None]
  - HEPATOMEGALY [None]
  - JC VIRUS INFECTION [None]
  - MUSCLE ATROPHY [None]
  - PARAESTHESIA [None]
  - PROGRESSIVE MULTIFOCAL LEUKOENCEPHALOPATHY [None]
  - SCAR [None]
  - SENSORY LOSS [None]
  - UPPER MOTOR NEURONE LESION [None]
